FAERS Safety Report 6440959-4 (Version None)
Quarter: 2009Q4

REPORT INFORMATION
  Report Type: 
  Country: None (occurrence: None)
  Receive Date: 20091116
  Receipt Date: 20091105
  Transmission Date: 20100525
  Serious: Yes (Other)
  Sender: FDA-Public Use
  Company Number: JP-ROCHE-663967

PATIENT
  Sex: Male
  Weight: 25 kg

DRUGS (4)
  1. TAMIFLU [Suspect]
     Indication: INFLUENZA
     Route: 048
     Dates: start: 20091013, end: 20091014
  2. ASVERIN [Concomitant]
     Route: 048
     Dates: start: 20091013, end: 20091017
  3. MUCODYNE [Concomitant]
     Route: 048
     Dates: start: 20091013, end: 20091017
  4. POLARAMINE [Concomitant]
     Route: 048
     Dates: start: 20091013, end: 20091017

REACTIONS (1)
  - ABNORMAL BEHAVIOUR [None]
